FAERS Safety Report 6903279-7 (Version None)
Quarter: 2010Q3

REPORT INFORMATION
  Report Type: 
  Country: None (occurrence: None)
  Receive Date: 20100803
  Receipt Date: 20080730
  Transmission Date: 20110219
  Serious: No
  Sender: FDA-Public Use
  Company Number: US-PFIZER INC-2008064453

PATIENT
  Sex: Female
  Weight: 63.5 kg

DRUGS (6)
  1. LYRICA [Suspect]
     Indication: NERVE INJURY
     Dates: start: 20080101, end: 20080701
  2. PREDNISONE [Concomitant]
  3. PREVACID [Concomitant]
  4. VIVELLE-DOT [Concomitant]
  5. AYGESTIN [Concomitant]
  6. ZYRTEC [Concomitant]

REACTIONS (2)
  - SOMNOLENCE [None]
  - SWELLING FACE [None]
